FAERS Safety Report 6829351-8 (Version None)
Quarter: 2010Q3

REPORT INFORMATION
  Report Type: 
  Country: None (occurrence: None)
  Receive Date: 20100709
  Receipt Date: 20070305
  Transmission Date: 20110219
  Serious: No
  Sender: FDA-Public Use
  Company Number: US-PFIZER INC-2007014897

PATIENT
  Sex: Female
  Weight: 81.65 kg

DRUGS (5)
  1. CHANTIX [Suspect]
     Indication: SMOKING CESSATION THERAPY
     Dates: start: 20070201
  2. ALL OTHER NON-THERAPEUTIC PRODUCTS [Suspect]
  3. RANITIDINE [Concomitant]
  4. ZETIA [Concomitant]
  5. CENTRUM [Concomitant]

REACTIONS (2)
  - FLATULENCE [None]
  - RASH [None]
